FAERS Safety Report 6862990-7 (Version None)
Quarter: 2010Q3

REPORT INFORMATION
  Report Type: 
  Country: None (occurrence: None)
  Receive Date: 20100721
  Receipt Date: 20100708
  Transmission Date: 20110219
  Serious: Yes (Other)
  Sender: FDA-Public Use
  Company Number: JP-PFIZER INC-2010070507

PATIENT
  Sex: Female
  Weight: 34 kg

DRUGS (22)
  1. SILDENAFIL CITRATE [Suspect]
     Indication: PULMONARY ARTERIAL HYPERTENSION
     Dosage: UNK
     Route: 048
     Dates: start: 20090207, end: 20090210
  2. SILDENAFIL CITRATE [Suspect]
     Indication: SCLERODERMA
     Dosage: UNK
     Dates: start: 20090212, end: 20091101
  3. SILDENAFIL CITRATE [Suspect]
     Dosage: 20 MG, 3X/DAY
     Dates: start: 20091203
  4. RHEUMATREX [Suspect]
     Dosage: UNK
     Route: 048
     Dates: end: 20100228
  5. ETANERCEPT [Suspect]
     Dosage: UNK
     Route: 058
     Dates: start: 20100113, end: 20100223
  6. FOLIAMIN [Concomitant]
     Dosage: UNK
     Route: 048
  7. RABEPRAZOLE SODIUM [Concomitant]
     Dosage: UNK
     Route: 048
  8. UNIPHYL [Concomitant]
     Dosage: UNK
     Route: 048
  9. MUCOSTA [Concomitant]
     Dosage: UNK
     Route: 048
  10. VOLTAREN [Concomitant]
     Dosage: UNK
  11. ALOSENN [Concomitant]
     Dosage: UNK
     Route: 048
  12. ISODINE [Concomitant]
     Dosage: UNK
     Dates: start: 20091207
  13. FLURBIPROFEN [Concomitant]
     Dosage: UNK
     Dates: start: 20091221
  14. BROTIZOLAM [Concomitant]
     Dosage: UNK
     Route: 048
     Dates: start: 20091223
  15. OLMETEC [Concomitant]
     Dosage: UNK
     Route: 048
     Dates: start: 20100107
  16. KETOPROFEN [Concomitant]
     Dosage: UNK
     Dates: start: 20100108
  17. ISCOTIN [Concomitant]
     Dosage: UNK
     Route: 048
     Dates: start: 20100109, end: 20100224
  18. SATOSALBE [Concomitant]
     Dosage: UNK
     Dates: start: 20100112
  19. BUPRENORPHINE HCL [Concomitant]
     Dosage: UNK
     Dates: start: 20091208
  20. PALUX [Concomitant]
     Dosage: UNK
     Route: 017
     Dates: start: 20091208
  21. LEVOBUPIVACAINE HYDROCHLORIDE [Concomitant]
     Dosage: UNK
     Dates: start: 20091208, end: 20100104
  22. TRACLEER [Concomitant]
     Indication: PULMONARY ARTERIAL HYPERTENSION
     Dosage: UNK
     Dates: end: 20090908

REACTIONS (1)
  - PLATELET COUNT DECREASED [None]
